FAERS Safety Report 21373580 (Version 2)
Quarter: 2022Q4

REPORT INFORMATION
  Report Type: Spontaneous
  Country: US (occurrence: US)
  Receive Date: 20220925
  Receipt Date: 20221229
  Transmission Date: 20230112
  Serious: No
  Sender: FDA-Public Use
  Company Number: US-BRISTOL-MYERS SQUIBB COMPANY-2022-110798

PATIENT
  Age: 66 Year
  Sex: Female

DRUGS (3)
  1. OPDIVO [Suspect]
     Active Substance: NIVOLUMAB
     Indication: Uterine cancer
     Dosage: DOSE : 221MG;     FREQ : EVERY 10 DAYS
  2. OPDIVO [Suspect]
     Active Substance: NIVOLUMAB
     Dosage: 221 MG EVERY 10 DAYS
  3. YERVOY [Suspect]
     Active Substance: IPILIMUMAB
     Indication: Uterine cancer
     Dosage: 72.5 MG EVERY 21 DAYS

REACTIONS (2)
  - Scan abnormal [Unknown]
  - Off label use [Unknown]

NARRATIVE: CASE EVENT DATE: 20220101
